FAERS Safety Report 19001186 (Version 2)
Quarter: 2021Q4

REPORT INFORMATION
  Report Type: Spontaneous
  Country: CA (occurrence: CA)
  Receive Date: 20210312
  Receipt Date: 20211025
  Transmission Date: 20220303
  Serious: Yes (Life-Threatening, Hospitalization, Other)
  Sender: FDA-Public Use
  Company Number: CA-GRANULES-CA-2021GRALIT00183

PATIENT
  Sex: Male

DRUGS (5)
  1. ACETAMINOPHEN [Suspect]
     Active Substance: ACETAMINOPHEN
     Indication: Foetal exposure during pregnancy
     Route: 065
  2. ACETYLCYSTEINE [Interacting]
     Active Substance: ACETYLCYSTEINE
     Indication: Toxicity to various agents
     Route: 065
  3. ACETYLCYSTEINE [Interacting]
     Active Substance: ACETYLCYSTEINE
     Route: 065
  4. ACETYLCYSTEINE [Interacting]
     Active Substance: ACETYLCYSTEINE
     Route: 065
  5. DEXTROSE [Interacting]
     Active Substance: DEXTROSE
     Indication: Hypoglycaemia
     Route: 040

REACTIONS (10)
  - Overdose [Recovered/Resolved]
  - Toxicity to various agents [Recovered/Resolved]
  - Neonatal respiratory depression [Recovered/Resolved]
  - Foetal exposure during pregnancy [Recovered/Resolved with Sequelae]
  - Encephalopathy [Recovered/Resolved]
  - Metabolic acidosis [Recovered/Resolved]
  - Hypoglycaemia neonatal [Recovered/Resolved]
  - Liver injury [Recovered/Resolved]
  - Foetal heart rate decreased [Recovered/Resolved]
  - Premature baby [Recovered/Resolved with Sequelae]
